FAERS Safety Report 8820102 (Version 2)
Quarter: 2012Q4

REPORT INFORMATION
  Report Type: 
  Country: GB (occurrence: GB)
  Receive Date: 20121001
  Receipt Date: 20121030
  Transmission Date: 20130627
  Serious: Yes (Other)
  Sender: FDA-Public Use
  Company Number: GB-VERTEX PHARMACEUTICAL INC.-2012-021796

PATIENT
  Age: 39 Year
  Sex: Male

DRUGS (3)
  1. INCIVO [Suspect]
     Indication: HEPATITIS C
     Dosage: 750 mg, tid
     Route: 048
     Dates: start: 20120809, end: 20120813
  2. PEG INTERFERON [Concomitant]
     Indication: HEPATITIS C
     Dosage: Dosage Form: Unspecified
     Route: 065
  3. RIBAVIRIN [Concomitant]
     Indication: HEPATITIS C
     Dosage: Dosage Form: Unspecified
     Route: 065

REACTIONS (4)
  - Malaise [Unknown]
  - Depressed mood [Recovered/Resolved]
  - Nausea [Recovered/Resolved]
  - Anal pruritus [Recovered/Resolved]
